FAERS Safety Report 11215660 (Version 1)
Quarter: 2015Q2

REPORT INFORMATION
  Report Type: Spontaneous
  Country: US (occurrence: None)
  Receive Date: 20150623
  Receipt Date: 20150623
  Transmission Date: 20150821
  Serious: No
  Sender: FDA-Public Use
  Company Number: None

PATIENT
  Age: 25 Year
  Sex: Female
  Weight: 76.2 kg

DRUGS (2)
  1. BUPOPRION XL 300 MG (MBR) [Suspect]
     Active Substance: BUPROPION
     Indication: DEPRESSION
     Dosage: 30 TABS
     Route: 048
     Dates: start: 201210
  2. BUPOPRION XL 300 MG (MBR) [Suspect]
     Active Substance: BUPROPION
     Indication: ANXIETY
     Dosage: 30 TABS
     Route: 048
     Dates: start: 201210

REACTIONS (3)
  - Depression [None]
  - Anxiety [None]
  - Product substitution issue [None]

NARRATIVE: CASE EVENT DATE: 201210
